FAERS Safety Report 7907321-6 (Version None)
Quarter: 2011Q4

REPORT INFORMATION
  Report Type: 
  Country: None (occurrence: None)
  Receive Date: 20111110
  Receipt Date: 20111101
  Transmission Date: 20120403
  Serious: Yes (Hospitalization)
  Sender: FDA-Public Use
  Company Number: US-GLAXOSMITHKLINE-B0705780A

PATIENT
  Sex: Male
  Weight: 91.8 kg

DRUGS (18)
  1. LOTENSIN [Concomitant]
  2. ASPIRIN [Concomitant]
  3. TOPROL-XL [Concomitant]
  4. ZETIA [Concomitant]
  5. CRESTOR [Concomitant]
  6. NORVASC [Concomitant]
  7. AMARYL [Concomitant]
  8. DEMADEX [Concomitant]
  9. POTASSIUM CHLORIDE [Concomitant]
  10. VIOXX [Concomitant]
  11. AMIODARONE HCL [Concomitant]
  12. LASIX [Concomitant]
  13. FOLTX [Concomitant]
  14. COREG [Concomitant]
  15. HYDROCHLOROTHIAZIDE [Concomitant]
  16. AVANDIA [Suspect]
     Indication: DIABETES MELLITUS
     Dosage: 4MG TWICE PER DAY
     Route: 048
     Dates: start: 20041101, end: 20070601
  17. AVANDAMET [Suspect]
     Indication: DIABETES MELLITUS
     Route: 048
     Dates: start: 20040101
  18. PROSCAR [Concomitant]

REACTIONS (3)
  - CEREBROVASCULAR ACCIDENT [None]
  - CARDIAC FAILURE CONGESTIVE [None]
  - MYOCARDIAL INFARCTION [None]
